FAERS Safety Report 6371535-X (Version None)
Quarter: 2009Q3

REPORT INFORMATION
  Report Type: 
  Country: None (occurrence: None)
  Receive Date: 20090923
  Receipt Date: 20070926
  Transmission Date: 20100115
  Serious: Yes (Hospitalization, Other)
  Sender: FDA-Public Use
  Company Number: US-ASTRAZENECA-2007UW15730

PATIENT
  Age: 493 Month
  Sex: Female
  Weight: 61.2 kg

DRUGS (22)
  1. SEROQUEL [Suspect]
     Indication: BIPOLAR DISORDER
     Dosage: 25 MG - 600 MG
     Route: 048
     Dates: start: 20030716, end: 20040311
  2. SEROQUEL [Suspect]
     Route: 048
     Dates: start: 20031010
  3. SEROQUEL [Suspect]
     Route: 048
     Dates: start: 20040708, end: 20050422
  4. SEROQUEL [Suspect]
     Dosage: 100 MG
     Route: 048
     Dates: start: 20050413, end: 20050414
  5. SEROQUEL [Suspect]
     Route: 048
     Dates: end: 20060101
  6. TRILEPTAL [Suspect]
     Route: 048
     Dates: start: 20031010
  7. TRILEPTAL [Suspect]
     Route: 048
  8. PAXIL CR [Suspect]
     Indication: DEPRESSION
     Route: 048
  9. LEPTOPRIL [Suspect]
     Indication: WEIGHT DECREASED
     Route: 048
  10. RELACORE [Concomitant]
     Indication: WEIGHT CONTROL
     Route: 048
  11. ZYPREXA [Concomitant]
     Route: 048
     Dates: start: 19980101, end: 19990101
  12. EFFEXOR [Concomitant]
     Route: 048
  13. RISPERDAL [Concomitant]
     Route: 048
     Dates: start: 19980101, end: 19990101
  14. TRAZDONE [Concomitant]
     Route: 048
  15. LASIX [Concomitant]
  16. ALEVE [Concomitant]
     Dosage: PRN
     Route: 048
  17. ADVIL [Concomitant]
     Dosage: PRN
     Route: 048
  18. ESTRACE [Concomitant]
     Route: 048
  19. DARVOCET-N 100 [Concomitant]
     Dosage: PROXYPHENE-N + ACETAMINOPHEN 100MG + 650 MG AS NEEDED
  20. TOPAMAX [Concomitant]
     Route: 048
  21. DEPAKOTE [Concomitant]
     Route: 048
     Dates: start: 20030515
  22. SINEQUAN [Concomitant]
     Route: 048
     Dates: start: 20030515

REACTIONS (16)
  - ABDOMINAL PAIN [None]
  - ALANINE AMINOTRANSFERASE INCREASED [None]
  - ASPARTATE AMINOTRANSFERASE INCREASED [None]
  - BLOOD ALKALINE PHOSPHATASE [None]
  - CHOLECYSTITIS CHRONIC [None]
  - CONFUSIONAL STATE [None]
  - CONTUSION [None]
  - DEHYDRATION [None]
  - FALL [None]
  - HEAD INJURY [None]
  - HEPATIC INFECTION [None]
  - HYPERBILIRUBINAEMIA [None]
  - INTENTIONAL OVERDOSE [None]
  - PANCREATITIS [None]
  - SUICIDE ATTEMPT [None]
  - VOMITING [None]
